FAERS Safety Report 14110403 (Version 1)
Quarter: 2017Q4

REPORT INFORMATION
  Report Type: Spontaneous
  Country: US (occurrence: US)
  Receive Date: 20171019
  Receipt Date: 20171019
  Transmission Date: 20180321
  Serious: No
  Sender: FDA-Public Use
  Company Number: None

PATIENT
  Age: 51 Year
  Sex: Female
  Weight: 89.1 kg

DRUGS (7)
  1. VITAMIN D [Concomitant]
     Active Substance: CHOLECALCIFEROL
  2. PRILOSEC [Concomitant]
     Active Substance: OMEPRAZOLE MAGNESIUM
  3. CLAIRITIN [Concomitant]
  4. AYGESTIN [Suspect]
     Active Substance: NORETHINDRONE ACETATE
     Indication: AMENORRHOEA
     Dosage: ?          QUANTITY:1 TABLET(S);?
     Route: 048
     Dates: start: 20170918, end: 20171017
  5. BUSPERONE [Concomitant]
  6. LEXAPRO [Concomitant]
     Active Substance: ESCITALOPRAM OXALATE
  7. NORVASC [Concomitant]
     Active Substance: AMLODIPINE BESYLATE

REACTIONS (7)
  - Adjustment disorder [None]
  - Blood pressure increased [None]
  - Vision blurred [None]
  - Anxiety [None]
  - Depression [None]
  - Emotional disorder [None]
  - Fatigue [None]

NARRATIVE: CASE EVENT DATE: 20171018
